FAERS Safety Report 7903376-3 (Version None)
Quarter: 2011Q4

REPORT INFORMATION
  Report Type: 
  Country: None (occurrence: None)
  Receive Date: 20111109
  Receipt Date: 20111103
  Transmission Date: 20120403
  Serious: No
  Sender: FDA-Public Use
  Company Number: US-PFIZER INC-2011270169

PATIENT
  Sex: Female

DRUGS (5)
  1. NIFEDIPINE [Suspect]
     Indication: BLOOD PRESSURE
  2. MECLIZINE HCL [Suspect]
     Indication: DIZZINESS
     Dosage: UNK
  3. GABAPENTIN [Suspect]
     Indication: FIBROMYALGIA
     Dosage: UNK
  4. NIFEDIPINE [Suspect]
     Indication: NEUROPATHY PERIPHERAL
     Dosage: UNK
  5. NIFEDIPINE [Suspect]
     Indication: REYNOLD'S SYNDROME

REACTIONS (1)
  - DRUG INEFFECTIVE [None]
